FAERS Safety Report 15948317 (Version 1)
Quarter: 2019Q1

REPORT INFORMATION
  Report Type: Spontaneous
  Country: GB (occurrence: GB)
  Receive Date: 20190212
  Receipt Date: 20190212
  Transmission Date: 20190417
  Serious: Yes (Disabling, Other)
  Sender: FDA-Public Use
  Company Number: GB-TEVA-2019-GB-1009480

PATIENT
  Age: 65 Year
  Sex: Male
  Weight: 99.78 kg

DRUGS (2)
  1. SIMVASTATIN. [Suspect]
     Active Substance: SIMVASTATIN
     Indication: CEREBROVASCULAR ACCIDENT
     Route: 048
     Dates: start: 20131112, end: 20190116
  2. SERTRALINE [Concomitant]
     Active Substance: SERTRALINE HYDROCHLORIDE
     Indication: DEPRESSION

REACTIONS (7)
  - Joint swelling [Unknown]
  - Hypersomnia [Unknown]
  - Headache [Not Recovered/Not Resolved]
  - Papule [Unknown]
  - Contusion [Unknown]
  - Muscle spasms [Unknown]
  - Erectile dysfunction [Unknown]

NARRATIVE: CASE EVENT DATE: 20151014
